FAERS Safety Report 7179575-8 (Version None)
Quarter: 2010Q4

REPORT INFORMATION
  Report Type: 
  Country: None (occurrence: None)
  Receive Date: 20101221
  Receipt Date: 20101207
  Transmission Date: 20110411
  Serious: Yes (Other)
  Sender: FDA-Public Use
  Company Number: PHHY2010AT84099

PATIENT
  Age: 87 Year
  Sex: Female
  Weight: 69 kg

DRUGS (2)
  1. DIOVAN TRIPLE DTR+TAB [Suspect]
     Indication: HYPERTENSION
     Dosage: 10/160 MG
     Route: 048
     Dates: start: 20100623
  2. MODURETIC 5-50 [Concomitant]
     Dosage: 5 G ONCE

REACTIONS (2)
  - HEAT OEDEMA [None]
  - HYPERTENSION [None]
